FAERS Safety Report 4350218-1 (Version None)
Quarter: 2004Q2

REPORT INFORMATION
  Report Type: 
  Country: None (occurrence: None)
  Receive Date: 20040428
  Receipt Date: 20040406
  Transmission Date: 20050107
  Serious: Yes (Other)
  Sender: FDA-Public Use
  Company Number: DEWYE646417MAR04

PATIENT
  Sex: Female

DRUGS (3)
  1. TREVILOR (VENLAFAXINE HYDROCHLORIDE, TABLET) [Suspect]
     Dosage: 35 MG 1X PER 1 DAY
     Route: 048
  2. BELOC-ZOC MITE (METOPROLOL SUCCINATE) [Concomitant]
  3. DYTIDE (BENZTHIAZIDE/TRIAMTERENE) [Concomitant]

REACTIONS (3)
  - BLOOD PRESSURE INCREASED [None]
  - CONDITION AGGRAVATED [None]
  - DRUG WITHDRAWAL SYNDROME [None]
